FAERS Safety Report 18559991 (Version 3)
Quarter: 2020Q4

REPORT INFORMATION
  Report Type: Other
  Country: CA (occurrence: CA)
  Receive Date: 20201130
  Receipt Date: 20201224
  Transmission Date: 20210114
  Serious: Yes (Hospitalization)
  Sender: FDA-Public Use
  Company Number: CA-ROCHE-2512096

PATIENT
  Age: 35 Year
  Sex: Female
  Weight: 99.88 kg

DRUGS (17)
  1. OMEGA 3 [Concomitant]
     Active Substance: OMEGA-3 FATTY ACIDS
  2. SODIUM CHLORIDE. [Concomitant]
     Active Substance: SODIUM CHLORIDE
     Indication: PREMEDICATION
  3. SALBUTAMOL [Concomitant]
     Active Substance: ALBUTEROL
     Dosage: WHEN NEEDED
  4. OCREVUS [Suspect]
     Active Substance: OCRELIZUMAB
     Indication: RELAPSING-REMITTING MULTIPLE SCLEROSIS
     Dosage: THEN 600 MG EVERY 6 MONTHS
     Route: 042
     Dates: start: 20191223
  5. ACETAMINOPHEN. [Concomitant]
     Active Substance: ACETAMINOPHEN
     Indication: PREMEDICATION
     Route: 048
  6. BENADRYL [Concomitant]
     Active Substance: DIPHENHYDRAMINE HYDROCHLORIDE
     Route: 048
  7. LION^S MANE [Concomitant]
  8. VITAMIN C [Concomitant]
     Active Substance: ASCORBIC ACID
  9. OCREVUS [Suspect]
     Active Substance: OCRELIZUMAB
     Dosage: INFUSION NUMBER 3
     Route: 042
     Dates: start: 20200810
  10. FLOVENT [Concomitant]
     Active Substance: FLUTICASONE PROPIONATE
     Dosage: WHEN NEEDED
  11. OCREVUS [Suspect]
     Active Substance: OCRELIZUMAB
     Route: 042
  12. BENADRYL [Concomitant]
     Active Substance: DIPHENHYDRAMINE HYDROCHLORIDE
     Indication: PREMEDICATION
     Route: 048
  13. SYNTHROID [Concomitant]
     Active Substance: LEVOTHYROXINE SODIUM
     Indication: PRODUCT USED FOR UNKNOWN INDICATION
  14. IRON [Concomitant]
     Active Substance: IRON
  15. METHYLPREDNISOLONE. [Concomitant]
     Active Substance: METHYLPREDNISOLONE
     Indication: PREMEDICATION
     Route: 042
  16. SOLU-MEDROL [Concomitant]
     Active Substance: METHYLPREDNISOLONE SODIUM SUCCINATE
  17. CALCIUM [Concomitant]
     Active Substance: CALCIUM

REACTIONS (30)
  - Infusion related reaction [Recovered/Resolved]
  - Skin reaction [Recovering/Resolving]
  - Blood iron increased [Unknown]
  - Pyrexia [Unknown]
  - COVID-19 [Not Recovered/Not Resolved]
  - Back pain [Unknown]
  - Throat tightness [Not Recovered/Not Resolved]
  - Dyspnoea [Not Recovered/Not Resolved]
  - Anxiety [Unknown]
  - Arthralgia [Not Recovered/Not Resolved]
  - Pain [Recovered/Resolved]
  - Nasopharyngitis [Unknown]
  - Hyperhidrosis [Recovered/Resolved]
  - Muscle spasms [Recovered/Resolved]
  - Asthma [Recovered/Resolved]
  - Eye infection [Recovering/Resolving]
  - Nausea [Not Recovered/Not Resolved]
  - Hypoaesthesia oral [Recovered/Resolved]
  - Pharyngeal paraesthesia [Not Recovered/Not Resolved]
  - Gait disturbance [Not Recovered/Not Resolved]
  - Chest discomfort [Recovered/Resolved]
  - Visual impairment [Not Recovered/Not Resolved]
  - Ear pain [Recovered/Resolved]
  - Infection [Unknown]
  - Paraesthesia [Unknown]
  - Dyschromatopsia [Not Recovered/Not Resolved]
  - Pain in extremity [Recovering/Resolving]
  - Headache [Recovered/Resolved]
  - Cough [Not Recovered/Not Resolved]
  - Chills [Recovering/Resolving]

NARRATIVE: CASE EVENT DATE: 20191223
